FAERS Safety Report 4356352-4 (Version None)
Quarter: 2004Q2

REPORT INFORMATION
  Report Type: 
  Country: None (occurrence: None)
  Receive Date: 20040511
  Receipt Date: 20040511
  Transmission Date: 20050107
  Serious: Yes (Hospitalization)
  Sender: FDA-Public Use
  Company Number: None

PATIENT
  Age: 42 Year
  Sex: Female
  Weight: 53.1 kg

DRUGS (6)
  1. IRINOTECAN PHARMACIA/PFIZER [Suspect]
     Indication: NON-SMALL CELL LUNG CANCER
     Dosage: 100 MG/M2 DAYS 1 + 8 INTRAVENOUS
     Route: 042
     Dates: start: 20040428, end: 20040428
  2. CAPECITABINE ROCHE [Suspect]
     Indication: NON-SMALL CELL LUNG CANCER
     Dosage: 2,000 MG/M2 DAYS2-14 ORAL
     Route: 048
  3. FENTANYL [Concomitant]
  4. OXYCODONE [Concomitant]
  5. NEXIUM [Concomitant]
  6. ESTROSTEP [Concomitant]

REACTIONS (3)
  - CONVULSION [None]
  - INTERVERTEBRAL DISC PROTRUSION [None]
  - METASTASES TO CENTRAL NERVOUS SYSTEM [None]
